FAERS Safety Report 7320968-3 (Version None)
Quarter: 2011Q1

REPORT INFORMATION
  Report Type: 
  Country: None (occurrence: None)
  Receive Date: 20110221
  Receipt Date: 20110221
  Transmission Date: 20110831
  Serious: Yes (Other)
  Sender: FDA-Public Use
  Company Number: None

PATIENT
  Age: 23 Year
  Sex: Female
  Weight: 60 kg

DRUGS (2)
  1. NORCO [Suspect]
     Indication: RHEUMATOID ARTHRITIS
     Dosage: ONE TABLET Q6H PRN PO
     Route: 048
  2. FIORICET [Suspect]
     Indication: MIGRAINE
     Dosage: 1-2 TABLETS Q6H PRN PO
     Route: 048

REACTIONS (1)
  - HEPATIC FAILURE [None]
